FAERS Safety Report 5823154-9 (Version None)
Quarter: 2008Q3

REPORT INFORMATION
  Report Type: 
  Country: None (occurrence: None)
  Receive Date: 20080725
  Receipt Date: 20080715
  Transmission Date: 20090109
  Serious: Yes (Other)
  Sender: FDA-Public Use
  Company Number: PHHY2008JP13618

PATIENT
  Sex: Female

DRUGS (2)
  1. GLEEVEC [Suspect]
     Indication: GASTROINTESTINAL STROMAL TUMOUR
     Dosage: UNK
     Route: 048
  2. GLEEVEC [Suspect]
     Dosage: 100 MG/DAY

REACTIONS (2)
  - GASTROINTESTINAL STROMAL TUMOUR [None]
  - RASH [None]
